FAERS Safety Report 5448959-8 (Version None)
Quarter: 2007Q3

REPORT INFORMATION
  Report Type: 
  Country: None (occurrence: None)
  Receive Date: 20070911
  Receipt Date: 20070905
  Transmission Date: 20080115
  Serious: Yes (Hospitalization)
  Sender: FDA-Public Use
  Company Number: US-ELI_LILLY_AND_COMPANY-US200709001046

PATIENT
  Age: 80 Year
  Sex: Female

DRUGS (5)
  1. FORTEO [Suspect]
     Indication: OSTEOPOROSIS
     Dates: start: 20070730
  2. ISOSORB                            /00586302/ [Concomitant]
     Indication: CHEST DISCOMFORT
     Dosage: 60 MG, EACH MORNING
     Dates: start: 20070605
  3. NITROGLYCERIN [Concomitant]
     Indication: CHEST DISCOMFORT
     Dosage: 2 UNK, AS NEEDED
  4. NITROGLYCERIN [Concomitant]
     Dosage: 3 UNK, UNK
     Dates: start: 20070831
  5. TOPROL-XL [Concomitant]
     Dosage: 25 MG, EACH EVENING
     Dates: start: 20070712

REACTIONS (2)
  - CHEST DISCOMFORT [None]
  - GLUCOSE TOLERANCE IMPAIRED [None]
